FAERS Safety Report 5204714-5 (Version None)
Quarter: 2007Q1

REPORT INFORMATION
  Report Type: 
  Country: None (occurrence: None)
  Receive Date: 20070110
  Receipt Date: 20060623
  Transmission Date: 20070707
  Serious: No
  Sender: FDA-Public Use
  Company Number: US-BRISTOL-MYERS SQUIBB COMPANY-13421722

PATIENT
  Age: 27 Year
  Sex: Female
  Weight: 88 kg

DRUGS (5)
  1. ABILIFY [Suspect]
     Indication: BIPOLAR DISORDER
     Dosage: GRADUALLY INCREASED TO 15 MG/D.
     Route: 048
     Dates: start: 20060424
  2. NORTRIPTYLINE HCL [Concomitant]
  3. NEXIUM [Concomitant]
  4. REMERON [Concomitant]
  5. ALLEGRA [Concomitant]

REACTIONS (1)
  - SKIN DISCOLOURATION [None]
